FAERS Safety Report 4972528-7 (Version None)
Quarter: 2006Q2

REPORT INFORMATION
  Report Type: 
  Country: None (occurrence: None)
  Receive Date: 20060413
  Receipt Date: 20051101
  Transmission Date: 20061013
  Serious: Yes (Hospitalization)
  Sender: FDA-Public Use
  Company Number: ZA-MERCK-0511ZAF00007

PATIENT
  Sex: Female
  Weight: 65 kg

DRUGS (1)
  1. VIOXX [Suspect]
     Indication: OSTEOARTHRITIS
     Route: 048
     Dates: start: 20030710, end: 20041013

REACTIONS (7)
  - CHEST PAIN [None]
  - DIZZINESS [None]
  - KNEE OPERATION [None]
  - MYALGIA [None]
  - MYOCARDIAL INFARCTION [None]
  - WHEEZING [None]
  - WISDOM TEETH REMOVAL [None]
